FAERS Safety Report 21590948 (Version 1)
Quarter: 2022Q4

REPORT INFORMATION
  Report Type: Spontaneous
  Country: DE (occurrence: DE)
  Receive Date: 20221114
  Receipt Date: 20221114
  Transmission Date: 20230113
  Serious: Yes (Life-Threatening, Hospitalization)
  Sender: FDA-Public Use
  Company Number: DE-ADRED-08048-01

PATIENT
  Age: 52 Year
  Sex: Male
  Weight: 145 kg

DRUGS (3)
  1. RAMIPRIL [Suspect]
     Active Substance: RAMIPRIL
     Indication: Product used for unknown indication
     Dosage: 5 MILLIGRAM, QD, 5 MG, 1-0-0-0, TABLET
     Route: 048
  2. NITROGLYCERIN [Concomitant]
     Active Substance: NITROGLYCERIN
     Dosage: 0.4 MG/PUFF, NEED, SPRAY
     Route: 060
  3. SIMVASTATIN [Concomitant]
     Active Substance: SIMVASTATIN
     Dosage: 40 MILLIGRAM, QD, 40 MG, 0-0-1-0, TABLETS
     Route: 048

REACTIONS (3)
  - Acute myocardial infarction [Unknown]
  - Chest pain [Unknown]
  - Chest discomfort [Unknown]
